FAERS Safety Report 4815729-0 (Version None)
Quarter: 2005Q4

REPORT INFORMATION
  Report Type: 
  Country: None (occurrence: None)
  Receive Date: 20051031
  Receipt Date: 20050916
  Transmission Date: 20060501
  Serious: Yes (Hospitalization)
  Sender: FDA-Public Use
  Company Number: 2005AP05015

PATIENT
  Sex: Female
  Weight: 50 kg

DRUGS (10)
  1. ARIMIDEX [Suspect]
     Indication: BREAST CANCER
     Route: 048
     Dates: start: 20050422
  2. NOLVADEX [Suspect]
     Indication: BREAST CANCER
     Route: 048
     Dates: start: 20050106, end: 20050421
  3. ALESION [Suspect]
     Route: 048
     Dates: start: 20050422
  4. KEISHI-KA-JUTSUBU-TO [Suspect]
     Route: 048
  5. GANATON [Suspect]
     Route: 048
  6. TAKEPRON [Suspect]
     Route: 048
  7. NIVADIL [Suspect]
     Route: 048
  8. SENNARIDE [Suspect]
     Route: 048
  9. ULCERLMIN [Suspect]
     Route: 048
  10. BASEN [Suspect]
     Route: 048

REACTIONS (3)
  - BLOOD PRESSURE INCREASED [None]
  - PNEUMONIA [None]
  - THALAMUS HAEMORRHAGE [None]
